FAERS Safety Report 9723229 (Version 2)
Quarter: 2013Q4

REPORT INFORMATION
  Report Type: Spontaneous
  Country: US (occurrence: US)
  Receive Date: 20131202
  Receipt Date: 20131202
  Transmission Date: 20140711
  Serious: Yes (Hospitalization, Disabling, Other)
  Sender: FDA-Public Use
  Company Number: US-GILEAD-2008-0016617

PATIENT
  Age: 46 Year
  Sex: Male

DRUGS (13)
  1. TRUVADA [Suspect]
     Indication: ACQUIRED IMMUNODEFICIENCY SYNDROME
     Route: 048
     Dates: start: 2004, end: 20071120
  2. NORVIR [Concomitant]
     Indication: HIV INFECTION
     Route: 048
  3. ATAZANAVIR [Concomitant]
     Indication: HIV INFECTION
     Route: 048
  4. AMBIEN [Concomitant]
     Route: 048
  5. CLONOPIN [Concomitant]
     Route: 048
  6. COUMADIN [Concomitant]
     Route: 048
  7. LEVOCARNITINE [Concomitant]
     Route: 048
  8. HYDROCHLOROTHIAZIDE [Concomitant]
     Route: 048
  9. LISINOPRIL [Concomitant]
     Route: 048
  10. TRICOR [Concomitant]
     Route: 048
  11. LORATADINE [Concomitant]
     Route: 048
  12. VITAMIN B12 [Concomitant]
     Route: 048
  13. L-GLUTAMINE [Concomitant]
     Route: 048

REACTIONS (1)
  - Renal tubular necrosis [Recovered/Resolved with Sequelae]
